FAERS Safety Report 7777270-5 (Version None)
Quarter: 2011Q3

REPORT INFORMATION
  Report Type: 
  Country: None (occurrence: None)
  Receive Date: 20110926
  Receipt Date: 20110916
  Transmission Date: 20111222
  Serious: Yes (Other)
  Sender: FDA-Public Use
  Company Number: PHEH2011US04542

PATIENT
  Sex: Female

DRUGS (13)
  1. FLUCONAZOLE [Concomitant]
  2. COMPAZINE [Concomitant]
     Dosage: 10 MG, PRN,Q6H
  3. XELODA [Concomitant]
     Dosage: 500 MG, THREE TABLETS BID
  4. ADRIAMYCIN PFS [Concomitant]
  5. MS CONTIN [Concomitant]
     Dosage: 90 MG, BID
  6. DILAUDID [Concomitant]
     Dosage: 4 MILLIGRAMS TWO TO THREE TIMES PER DAY
  7. VANCOMYCIN [Concomitant]
  8. AREDIA [Suspect]
  9. VIOXX [Concomitant]
     Dosage: 25 MG, QD
  10. ATIVAN [Concomitant]
     Dosage: UNK UKN, UNK
  11. PRIMAXIN [Concomitant]
  12. PHENERGAN HCL [Concomitant]
     Dosage: 25 MG, PRN
     Route: 048
  13. TAXOTERE [Concomitant]

REACTIONS (23)
  - PATHOLOGICAL FRACTURE [None]
  - MUSCULOSKELETAL CHEST PAIN [None]
  - DEHYDRATION [None]
  - HIATUS HERNIA [None]
  - ATELECTASIS [None]
  - PNEUMONIA [None]
  - GASTROOESOPHAGEAL REFLUX DISEASE [None]
  - ASTHENIA [None]
  - CONSTIPATION [None]
  - RENAL CYST [None]
  - FEBRILE NEUTROPENIA [None]
  - DIARRHOEA [None]
  - BACK PAIN [None]
  - SUPRAPUBIC PAIN [None]
  - DYSPNOEA [None]
  - DYSPHAGIA [None]
  - CONFUSIONAL STATE [None]
  - CHILLS [None]
  - LUNG INFILTRATION [None]
  - PLEURAL EFFUSION [None]
  - SPINAL COLUMN STENOSIS [None]
  - PAINFUL RESPIRATION [None]
  - NAUSEA [None]
